FAERS Safety Report 6752113-7 (Version None)
Quarter: 2010Q2

REPORT INFORMATION
  Report Type: 
  Country: None (occurrence: None)
  Receive Date: 20100601
  Receipt Date: 20100601
  Transmission Date: 20101027
  Serious: Yes (Other)
  Sender: FDA-Public Use
  Company Number: None

PATIENT
  Age: 46 Year
  Sex: Female
  Weight: 79.3795 kg

DRUGS (4)
  1. EXTRANEAL [Suspect]
     Indication: PERITONEAL DIALYSIS
     Dosage: 1500 MLS DAILY IT
     Route: 037
     Dates: start: 20100510
  2. EXTRANEAL [Suspect]
     Indication: RENAL FAILURE CHRONIC
     Dosage: 1500 MLS DAILY IT
     Route: 037
     Dates: start: 20100510
  3. . [Concomitant]
  4. BAXTER 4.25%, 6 LITER PERITONEAL DIALYSIS SOLUTION [Concomitant]

REACTIONS (1)
  - MEDICATION ERROR [None]
